FAERS Safety Report 6420416-1 (Version None)
Quarter: 2009Q4

REPORT INFORMATION
  Report Type: 
  Country: None (occurrence: None)
  Receive Date: 20091029
  Receipt Date: 20091027
  Transmission Date: 20100525
  Serious: Yes (Hospitalization)
  Sender: FDA-Public Use
  Company Number: DE-WYE-G04672609

PATIENT
  Sex: Male
  Weight: 85 kg

DRUGS (10)
  1. RAPAMUNE [Suspect]
     Indication: RENAL TRANSPLANT
     Route: 048
     Dates: start: 20090319, end: 20091005
  2. MYCOPHENOLATE MOFETIL [Concomitant]
  3. FUROSEMIDE [Concomitant]
  4. TAMSULOSIN [Concomitant]
  5. SODIUM BICARBONATE IN PLASTIC CONTAINER [Concomitant]
  6. ACETYLSALICYLIC ACID [Concomitant]
  7. CALCITRIOL [Concomitant]
  8. FINASTERIDE [Concomitant]
  9. METHYLPREDNISOLONE 4MG TAB [Concomitant]
  10. RAMIPRIL [Concomitant]

REACTIONS (5)
  - ALVEOLITIS [None]
  - CARDIAC FAILURE [None]
  - ENDOCARDITIS [None]
  - PNEUMONIA [None]
  - PULMONARY OEDEMA [None]
